FAERS Safety Report 19996024 (Version 1)
Quarter: 2021Q4

REPORT INFORMATION
  Report Type: Spontaneous
  Country: US (occurrence: US)
  Receive Date: 20211026
  Receipt Date: 20211026
  Transmission Date: 20220303
  Serious: Yes (Other)
  Sender: FDA-Public Use
  Company Number: None

PATIENT
  Age: 76 Year
  Sex: Male
  Weight: 86.81 kg

DRUGS (13)
  1. ERLEADA [Suspect]
     Active Substance: APALUTAMIDE
     Indication: Prostate cancer
     Route: 048
     Dates: start: 20201215
  2. AMLODIPINE [Concomitant]
     Active Substance: AMLODIPINE BESYLATE
  3. ATENOLOL [Concomitant]
     Active Substance: ATENOLOL
  4. INVOKANA [Concomitant]
     Active Substance: CANAGLIFLOZIN
  5. CELECOXIB [Concomitant]
     Active Substance: CELECOXIB
  6. CYMBALTA [Concomitant]
     Active Substance: DULOXETINE HYDROCHLORIDE
  7. ENALAPRIL [Concomitant]
     Active Substance: ENALAPRIL
  8. FLUTICASONE [Concomitant]
     Active Substance: FLUTICASONE
  9. GLIMEPIRIDE [Concomitant]
     Active Substance: GLIMEPIRIDE
  10. ATIVAN [Concomitant]
     Active Substance: LORAZEPAM
  11. CRESTOR [Concomitant]
     Active Substance: ROSUVASTATIN CALCIUM
  12. TAMSULOSIN [Concomitant]
     Active Substance: TAMSULOSIN
  13. VALACYCLOVIR [Concomitant]
     Active Substance: VALACYCLOVIR HYDROCHLORIDE

REACTIONS (1)
  - Alopecia [None]

NARRATIVE: CASE EVENT DATE: 20211026
